FAERS Safety Report 8680975 (Version 7)
Quarter: 2013Q2

REPORT INFORMATION
  Report Type: Spontaneous
  Country: US (occurrence: US)
  Receive Date: 20120724
  Receipt Date: 20130517
  Transmission Date: 20140414
  Serious: Yes (Other)
  Sender: FDA-Public Use
  Company Number: US-PFIZER INC-2012176173

PATIENT
  Age: 37 Year
  Sex: Female
  Weight: 57 kg

DRUGS (17)
  1. GABAPENTIN [Suspect]
     Indication: NERVE INJURY
     Dosage: UNK
     Dates: start: 200610
  2. GABAPENTIN [Suspect]
     Indication: NEURALGIA
  3. GABAPENTIN [Suspect]
     Indication: NERVE INJURY
  4. GABAPENTIN [Suspect]
     Indication: NEURALGIA
  5. GABAPENTIN [Suspect]
     Indication: NEURALGIA
  6. GABAPENTIN [Suspect]
     Indication: NEURALGIA
  7. NORTRIPTYLINE [Suspect]
     Indication: NERVE INJURY
     Dosage: UNK
     Dates: start: 200506, end: 2006
  8. NORTRIPTYLINE [Suspect]
     Indication: NEURALGIA
     Dosage: UNK
  9. NORTRIPTYLINE [Suspect]
     Indication: NERVE INJURY
  10. NORTRIPTYLINE [Suspect]
     Indication: BACK PAIN
  11. SOMA [Concomitant]
     Indication: ACCIDENT AT WORK
     Dosage: UNK
     Dates: start: 200506
  12. FLEXERIL [Concomitant]
     Indication: ACCIDENT AT WORK
     Dosage: UNK
     Dates: start: 200506
  13. PERCOCET [Concomitant]
     Indication: ACCIDENT AT WORK
     Dosage: UNK
     Dates: start: 200506
  14. LIPITOR [Concomitant]
     Indication: BLOOD CHOLESTEROL INCREASED
     Dosage: UNK
  15. ZOVIRAX [Concomitant]
     Indication: STEVENS-JOHNSON SYNDROME
     Dosage: 400 MG, 2X/DAY
  16. VITAMIN D3 [Concomitant]
     Dosage: 15000 IU, 1X/DAY
  17. VITAMIN K [Concomitant]
     Dosage: UNK, 1X/DAY

REACTIONS (52)
  - Stevens-Johnson syndrome [Not Recovered/Not Resolved]
  - Weight increased [Unknown]
  - Abdominal mass [Unknown]
  - Haematochezia [Unknown]
  - Loss of consciousness [Unknown]
  - Upper respiratory tract infection [Not Recovered/Not Resolved]
  - Lung infection [Unknown]
  - Kidney infection [Unknown]
  - Toxicity to various agents [Unknown]
  - Weight decreased [Unknown]
  - Ulcer [Unknown]
  - Syncope [Unknown]
  - Gastrointestinal disorder [Unknown]
  - Visual acuity reduced [Unknown]
  - Eye irritation [Unknown]
  - Wound [Unknown]
  - Impaired work ability [Unknown]
  - Headache [Unknown]
  - Dyspepsia [Not Recovered/Not Resolved]
  - Onychoclasis [Not Recovered/Not Resolved]
  - Bowel movement irregularity [Unknown]
  - Pain [Unknown]
  - Asthenia [Not Recovered/Not Resolved]
  - Dizziness [Not Recovered/Not Resolved]
  - Abdominal pain [Not Recovered/Not Resolved]
  - Herpes zoster [Not Recovered/Not Resolved]
  - Skin exfoliation [Unknown]
  - Oropharyngeal pain [Unknown]
  - Dysphagia [Unknown]
  - Alopecia [Not Recovered/Not Resolved]
  - Nausea [Not Recovered/Not Resolved]
  - Vomiting [Not Recovered/Not Resolved]
  - Eye pain [Not Recovered/Not Resolved]
  - Tooth discolouration [Not Recovered/Not Resolved]
  - Dysgeusia [Not Recovered/Not Resolved]
  - Influenza [Not Recovered/Not Resolved]
  - Protein urine [Unknown]
  - Insomnia [Not Recovered/Not Resolved]
  - Body temperature fluctuation [Not Recovered/Not Resolved]
  - Muscle twitching [Unknown]
  - Thirst [Unknown]
  - Chills [Unknown]
  - Spinal disorder [Unknown]
  - Malaise [Unknown]
  - Vision blurred [Unknown]
  - General physical health deterioration [Unknown]
  - Calcinosis [Unknown]
  - Drug ineffective [Unknown]
  - Protein total increased [Unknown]
  - Blood cholesterol abnormal [Unknown]
  - Nail disorder [Unknown]
  - Throat irritation [Unknown]
